FAERS Safety Report 24178178 (Version 2)
Quarter: 2024Q3

REPORT INFORMATION
  Report Type: Spontaneous
  Country: FR (occurrence: FR)
  Receive Date: 20240806
  Receipt Date: 20240819
  Transmission Date: 20241017
  Serious: Yes (Other)
  Sender: AUROBINDO
  Company Number: FR-Merck Healthcare KGaA-2024038787

PATIENT
  Sex: Female

DRUGS (2)
  1. BISOPROLOL [Suspect]
     Active Substance: BISOPROLOL\BISOPROLOL FUMARATE
     Indication: Cardiac disorder
     Dosage: UNK
     Route: 065
  2. LEVOTHYROXINE [Suspect]
     Active Substance: LEVOTHYROXINE\LEVOTHYROXINE SODIUM
     Indication: Thyroid disorder
     Dosage: UNK
     Route: 065

REACTIONS (12)
  - Neuropathy peripheral [Unknown]
  - Colorectal cancer [Unknown]
  - Hypothyroidism [Unknown]
  - Dysphonia [Unknown]
  - Hyperhidrosis [Unknown]
  - Asthma [Unknown]
  - Ill-defined disorder [Unknown]
  - Acne [Unknown]
  - Fibromyalgia [Unknown]
  - Foreign body sensation in eyes [Unknown]
  - Fatigue [Unknown]
  - Erythema [Unknown]
